FAERS Safety Report 6695396-4 (Version None)
Quarter: 2010Q2

REPORT INFORMATION
  Report Type: 
  Country: None (occurrence: None)
  Receive Date: 20100424
  Receipt Date: 20100413
  Transmission Date: 20101027
  Serious: Yes (Disabling)
  Sender: FDA-Public Use
  Company Number: GB-ELI_LILLY_AND_COMPANY-GB201004003560

PATIENT
  Sex: Male

DRUGS (3)
  1. PROZAC [Suspect]
     Dates: start: 19950101
  2. STELAZINE [Concomitant]
     Dates: start: 19950101
  3. TEMAZEPAM [Concomitant]
     Dates: start: 19950101

REACTIONS (3)
  - MENTAL DISORDER [None]
  - MENTAL STATUS CHANGES [None]
  - WRONG DRUG ADMINISTERED [None]
